FAERS Safety Report 8790672 (Version 3)
Quarter: 2013Q2

REPORT INFORMATION
  Report Type: Spontaneous
  Country: US (occurrence: None)
  Receive Date: 20120830
  Receipt Date: 20130425
  Transmission Date: 20140414
  Serious: Yes (Hospitalization)
  Sender: FDA-Public Use
  Company Number: 2012PROUSA01872

PATIENT
  Age: 70 Year
  Sex: Male
  Weight: 59 kg

DRUGS (13)
  1. PROVENGE [Suspect]
     Indication: PROSTATE CANCER METASTATIC
     Dosage: 250ML, SINGLE, INTRAVENOUS
     Route: 042
     Dates: start: 20120806, end: 20120806
  2. CASODEX (BICALUTAMIDE) [Concomitant]
  3. ASPIRIN (ACETYLSALICYLIC ACID) [Concomitant]
  4. KLONOPIN (CLONAZEPAM) (TABLETS) [Concomitant]
  5. FOLATE (FOLIC ACID) [Concomitant]
  6. LORAZEPAM (LORAZEPAM) [Concomitant]
  7. VITAMIN B1 (THIAMINE HYDROCHLORIDE) [Concomitant]
  8. AMBIEN (ZOLPIDEM TARTRATE) [Concomitant]
  9. METOPROLOL (METOPROLOL TARTRATE) [Concomitant]
  10. CARDIZEM (DILTIAZEM HYDROCHLORIDE) [Concomitant]
  11. LISINOPRIL (LISINOPRIL) [Concomitant]
  12. ALBUTEROL HFA (SALBUTAMOL) [Concomitant]
  13. XGEVA (DENOSUMAB) [Concomitant]

REACTIONS (10)
  - Tuberculosis [None]
  - Chest discomfort [None]
  - Hypertension [None]
  - Bronchial secretion retention [None]
  - Pulmonary mass [None]
  - Refusal of treatment by patient [None]
  - Lung neoplasm malignant [None]
  - Metastatic neoplasm [None]
  - Malignant neoplasm progression [None]
  - Musculoskeletal chest pain [None]
